FAERS Safety Report 7603188-4 (Version None)
Quarter: 2011Q3

REPORT INFORMATION
  Report Type: 
  Country: None (occurrence: None)
  Receive Date: 20110701
  Receipt Date: 20110616
  Transmission Date: 20111222
  Serious: Yes (Hospitalization, Other)
  Sender: FDA-Public Use
  Company Number: 2011MA007943

PATIENT
  Age: 39 Year
  Sex: Female

DRUGS (2)
  1. RISPERIDONE [Suspect]
  2. CLOZARIL [Suspect]
     Dosage: 425 MG; QD; PO
     Route: 048

REACTIONS (2)
  - FATIGUE [None]
  - OVERDOSE [None]
